FAERS Safety Report 4314786-8 (Version None)
Quarter: 2004Q1

REPORT INFORMATION
  Report Type: 
  Country: None (occurrence: None)
  Receive Date: 20040310
  Receipt Date: 20040106
  Transmission Date: 20041129
  Serious: Yes (Death)
  Sender: FDA-Public Use
  Company Number: 200410010JP

PATIENT
  Age: 62 Year
  Sex: Female
  Weight: 48 kg

DRUGS (8)
  1. ARAVA [Suspect]
     Indication: RHEUMATOID ARTHRITIS
     Route: 048
     Dates: start: 20031022, end: 20031224
  2. TAGAMET [Concomitant]
     Route: 048
     Dates: start: 20030827
  3. VOLTAREN - SLOW RELEASE ^CIBA-GEIGY^ [Concomitant]
     Route: 048
     Dates: start: 20030827
  4. PREDNISOLONE [Concomitant]
     Route: 048
     Dates: start: 20030827
  5. MUCOSTA [Concomitant]
     Route: 048
     Dates: start: 20030827
  6. MINOMYCIN [Concomitant]
     Route: 048
     Dates: start: 20030827
  7. AZULFIDINE [Concomitant]
     Route: 048
     Dates: start: 20030827
  8. BONALON [Concomitant]
     Route: 048
     Dates: start: 20030827

REACTIONS (16)
  - ANURIA [None]
  - ASPARTATE AMINOTRANSFERASE INCREASED [None]
  - ASPERGILLOSIS [None]
  - BILIRUBIN CONJUGATED INCREASED [None]
  - BLOOD ALKALINE PHOSPHATASE INCREASED [None]
  - BLOOD BILIRUBIN INCREASED [None]
  - BLOOD CALCIUM DECREASED [None]
  - BLOOD LACTATE DEHYDROGENASE INCREASED [None]
  - BLOOD POTASSIUM DECREASED [None]
  - CHOLECYSTITIS INFECTIVE [None]
  - FUNGAL INFECTION [None]
  - GAMMA-GLUTAMYLTRANSFERASE INCREASED [None]
  - HEART RATE DECREASED [None]
  - INTERSTITIAL LUNG DISEASE [None]
  - PANCREATITIS [None]
  - PNEUMOCYSTIS CARINII PNEUMONIA [None]
